FAERS Safety Report 17672810 (Version 1)
Quarter: 2020Q2

REPORT INFORMATION
  Report Type: Spontaneous
  Country: US (occurrence: US)
  Receive Date: 20200416
  Receipt Date: 20200416
  Transmission Date: 20200713
  Serious: No
  Sender: FDA-Public Use
  Company Number: US-AMGEN-USASP2020061869

PATIENT
  Sex: Female

DRUGS (1)
  1. ENBREL [Suspect]
     Active Substance: ETANERCEPT
     Indication: JUVENILE IDIOPATHIC ARTHRITIS
     Dosage: 50 MILLIGRAM, 2 TIMES/WK
     Route: 065
     Dates: start: 2016

REACTIONS (3)
  - Product storage error [Unknown]
  - Wrong technique in product usage process [Unknown]
  - Injection site pain [Unknown]
